FAERS Safety Report 7369119-X (Version None)
Quarter: 2011Q1

REPORT INFORMATION
  Report Type: 
  Country: None (occurrence: None)
  Receive Date: 20110323
  Receipt Date: 20110314
  Transmission Date: 20110831
  Serious: Yes (Hospitalization, Other)
  Sender: FDA-Public Use
  Company Number: US-ABBOTT-11P-163-0708396-00

PATIENT
  Sex: Female
  Weight: 65.83 kg

DRUGS (8)
  1. ZOLOFT [Concomitant]
     Indication: DEPRESSION
     Route: 048
  2. HUMIRA [Suspect]
     Dates: start: 20081101
  3. IRON [Concomitant]
     Indication: PRODUCT USED FOR UNKNOWN INDICATION
  4. BUSPIRONE HCL [Concomitant]
     Indication: PRODUCT USED FOR UNKNOWN INDICATION
  5. HUMIRA [Suspect]
     Dates: start: 20070401, end: 20081101
  6. DEXILANT [Concomitant]
     Indication: PRODUCT USED FOR UNKNOWN INDICATION
  7. WELLBUTRIN [Concomitant]
     Indication: DEPRESSION
     Route: 048
  8. HUMIRA [Suspect]
     Indication: CROHN'S DISEASE
     Route: 058
     Dates: start: 20060101

REACTIONS (7)
  - INTESTINAL OBSTRUCTION [None]
  - ABDOMINAL PAIN [None]
  - ANAEMIA [None]
  - ARTHRALGIA [None]
  - HEPATIC ENZYME INCREASED [None]
  - DRUG INEFFECTIVE [None]
  - DIARRHOEA HAEMORRHAGIC [None]
